FAERS Safety Report 7106720-2 (Version None)
Quarter: 2010Q4

REPORT INFORMATION
  Report Type: 
  Country: None (occurrence: None)
  Receive Date: 20101116
  Receipt Date: 20100818
  Transmission Date: 20110411
  Serious: No
  Sender: FDA-Public Use
  Company Number: US-ABBOTT-10P-163-0664825-00

PATIENT
  Sex: Male
  Weight: 90.8 kg

DRUGS (6)
  1. SIMCOR [Suspect]
     Indication: DYSLIPIDAEMIA
     Dosage: 1000/20MG AT BEDTIME
     Route: 048
     Dates: start: 20100201
  2. SIMCOR [Suspect]
     Dosage: 750/20MG AT BEDTIME
     Route: 048
  3. LISINOPRIL [Concomitant]
     Indication: PRODUCT USED FOR UNKNOWN INDICATION
     Route: 048
  4. AMBIEN [Concomitant]
     Indication: PRODUCT USED FOR UNKNOWN INDICATION
     Route: 048
  5. ALBUTEROL [Concomitant]
     Indication: PRODUCT USED FOR UNKNOWN INDICATION
  6. OVAR [Concomitant]
     Indication: PRODUCT USED FOR UNKNOWN INDICATION

REACTIONS (1)
  - FLUSHING [None]
